FAERS Safety Report 25750734 (Version 2)
Quarter: 2025Q3

REPORT INFORMATION
  Report Type: Spontaneous
  Country: CN (occurrence: CN)
  Receive Date: 20250902
  Receipt Date: 20250929
  Transmission Date: 20251020
  Serious: Yes (Life-Threatening, Hospitalization)
  Sender: ALKEM
  Company Number: None

PATIENT
  Age: 55 Year
  Sex: Female
  Weight: 66.5 kg

DRUGS (10)
  1. TACROLIMUS [Interacting]
     Active Substance: TACROLIMUS
     Indication: Dermatomyositis
     Dosage: 0.5 MILLIGRAM, QD
     Route: 065
     Dates: start: 20220325
  2. TACROLIMUS [Interacting]
     Active Substance: TACROLIMUS
     Indication: Interstitial lung disease
     Dosage: 1.5 MILLIGRAM, BID (INCREASED DOSE)
     Route: 065
     Dates: start: 20220328, end: 20220401
  3. TACROLIMUS [Interacting]
     Active Substance: TACROLIMUS
     Indication: Immunosuppressant drug therapy
     Dosage: 0.5 MILLIGRAM, BID (RECHALLANGE DOSE)
     Route: 065
  4. TACROLIMUS [Interacting]
     Active Substance: TACROLIMUS
     Dosage: 0.5 MILLIGRAM, QD (INCRAESED DOSE) AT 8 AM
     Route: 065
  5. TACROLIMUS [Interacting]
     Active Substance: TACROLIMUS
     Route: 065
  6. OMEPRAZOLE [Interacting]
     Active Substance: OMEPRAZOLE
     Indication: Gastrointestinal disorder prophylaxis
     Dosage: 20 MILLIGRAM, QD
     Route: 065
     Dates: start: 20220325, end: 20220401
  7. ACARBOSE [Concomitant]
     Active Substance: ACARBOSE
     Indication: Type 2 diabetes mellitus
     Dosage: 100 MILLIGRAM, TID
     Route: 065
  8. METHYLPREDNISOLONE [Concomitant]
     Active Substance: METHYLPREDNISOLONE
     Indication: Dermatomyositis
     Dosage: 40 MILLIGRAM, QD
     Route: 065
     Dates: start: 20220325
  9. METHYLPREDNISOLONE [Concomitant]
     Active Substance: METHYLPREDNISOLONE
     Indication: Interstitial lung disease
     Dosage: 80 MILLIGRAM, QD
     Route: 065
     Dates: start: 20220328
  10. METHYLPREDNISOLONE [Concomitant]
     Active Substance: METHYLPREDNISOLONE
     Indication: Immunosuppressant drug therapy
     Dosage: 60 MILLIGRAM, QD (REDUCED DOSE)
     Route: 065
     Dates: start: 20220405

REACTIONS (10)
  - Toxicity to various agents [Recovered/Resolved]
  - Blood lactic acid increased [Unknown]
  - Fatigue [Recovering/Resolving]
  - Hypertension [Recovered/Resolved]
  - Immunosuppressant drug level increased [Unknown]
  - Drug interaction [Unknown]
  - Dizziness [Unknown]
  - Diarrhoea [Recovered/Resolved]
  - Arthralgia [Recovered/Resolved]
  - Nausea [Unknown]

NARRATIVE: CASE EVENT DATE: 20220401
